FAERS Safety Report 20394167 (Version 1)
Quarter: 2022Q1

REPORT INFORMATION
  Report Type: Spontaneous
  Country: NO (occurrence: NO)
  Receive Date: 20220129
  Receipt Date: 20220129
  Transmission Date: 20220423
  Serious: Yes (Other)
  Sender: FDA-Public Use
  Company Number: None

PATIENT
  Age: 52 Year
  Sex: Female

DRUGS (3)
  1. LETROZOLE [Interacting]
     Active Substance: LETROZOLE
     Indication: Breast cancer
     Route: 048
     Dates: start: 20200101
  2. TOZINAMERAN [Interacting]
     Active Substance: TOZINAMERAN
     Indication: Immunisation
     Dosage: DOSE NO. IN SERIES: 2. VACCINATION SITE: LEFT ARM
     Route: 030
     Dates: start: 20210303
  3. CALCIUM CARBONATE\CHOLECALCIFEROL [Concomitant]
     Active Substance: CALCIUM CARBONATE\CHOLECALCIFEROL
     Dosage: 1000/800 MG
     Route: 048
     Dates: start: 20200101

REACTIONS (3)
  - Throat tightness [Unknown]
  - Swelling face [Unknown]
  - Drug interaction [Unknown]

NARRATIVE: CASE EVENT DATE: 20210316
